FAERS Safety Report 7232581-7 (Version None)
Quarter: 2011Q1

REPORT INFORMATION
  Report Type: 
  Country: None (occurrence: None)
  Receive Date: 20110119
  Receipt Date: 20110110
  Transmission Date: 20110831
  Serious: Yes (Hospitalization)
  Sender: FDA-Public Use
  Company Number: FR-PFIZER INC-2005015919

PATIENT
  Age: 54 Year
  Sex: Male
  Weight: 64 kg

DRUGS (6)
  1. FILGRASTIM [Suspect]
     Indication: ILL-DEFINED DISORDER
     Route: 058
     Dates: start: 20041116, end: 20041201
  2. AMPHOTERICIN B [Suspect]
     Indication: ILL-DEFINED DISORDER
     Dosage: 250 MG, 6X/DAY
     Route: 048
     Dates: start: 20041110, end: 20041201
  3. CEFEPIME [Concomitant]
     Dosage: 1 G, UNK
     Route: 051
  4. IDARUBICIN HCL [Suspect]
     Indication: ILL-DEFINED DISORDER
     Dosage: 21 MG, 1X/DAY
     Route: 042
     Dates: start: 20041111, end: 20041113
  5. CYTARABINE [Suspect]
     Indication: ILL-DEFINED DISORDER
     Dosage: 3.6 G, 1X/DAY
     Route: 042
     Dates: start: 20041111, end: 20041115
  6. OFLOXACIN [Concomitant]
     Dosage: 200 MG/40 ML
     Route: 042

REACTIONS (2)
  - LUNG INFILTRATION [None]
  - ACUTE RESPIRATORY DISTRESS SYNDROME [None]
